FAERS Safety Report 7248141-8 (Version None)
Quarter: 2011Q1

REPORT INFORMATION
  Report Type: 
  Country: None (occurrence: None)
  Receive Date: 20110127
  Receipt Date: 20110121
  Transmission Date: 20110831
  Serious: Yes (Other)
  Sender: FDA-Public Use
  Company Number: CHPA2011US01397

PATIENT
  Age: 75 Year
  Sex: Male
  Weight: 95.238 kg

DRUGS (1)
  1. PRIVATE LABEL [Suspect]
     Indication: SMOKING CESSATION THERAPY
     Dosage: 21 MG, QD
     Route: 062
     Dates: start: 20080101, end: 20080101

REACTIONS (3)
  - PERIPHERAL ARTERIAL OCCLUSIVE DISEASE [None]
  - DRUG ADMINISTERED AT INAPPROPRIATE SITE [None]
  - NICOTINE DEPENDENCE [None]
